FAERS Safety Report 5739307-4 (Version None)
Quarter: 2008Q2

REPORT INFORMATION
  Report Type: 
  Country: None (occurrence: None)
  Receive Date: 20080515
  Receipt Date: 20080515
  Transmission Date: 20081010
  Serious: Yes (Death)
  Sender: FDA-Public Use
  Company Number: None

PATIENT
  Sex: Female
  Weight: 44.4525 kg

DRUGS (2)
  1. HEPARIN [Suspect]
     Indication: MYOCARDIAL INFARCTION
     Dosage: INTRAVENOU
     Route: 042
     Dates: start: 20080114
  2. HEPARIN [Suspect]
     Indication: MYOCARDIAL INFARCTION
     Dosage: INTRAVENOU
     Route: 042
     Dates: start: 20080118

REACTIONS (2)
  - DYSPNOEA [None]
  - HYPOTENSION [None]
